FAERS Safety Report 23600033 (Version 1)
Quarter: 2024Q1

REPORT INFORMATION
  Report Type: Spontaneous
  Country: CN (occurrence: CN)
  Receive Date: 20240306
  Receipt Date: 20240306
  Transmission Date: 20240409
  Serious: Yes (Life-Threatening, Hospitalization)
  Sender: FDA-Public Use
  Company Number: CN-JNJFOC-20240301915

PATIENT
  Age: 2 Year
  Sex: Male
  Weight: 13 kg

DRUGS (1)
  1. CHILDRENS MOTRIN [Suspect]
     Active Substance: IBUPROFEN
     Indication: Upper respiratory tract infection
     Route: 048
     Dates: start: 20240227, end: 20240227

REACTIONS (4)
  - Loss of consciousness [Recovering/Resolving]
  - Hypothermia [Recovering/Resolving]
  - Heart rate decreased [Recovering/Resolving]
  - Indifference [Recovering/Resolving]

NARRATIVE: CASE EVENT DATE: 20240227
